FAERS Safety Report 15075275 (Version 1)
Quarter: 2018Q2

REPORT INFORMATION
  Report Type: Spontaneous
  Country: US (occurrence: US)
  Receive Date: 20180627
  Receipt Date: 20180627
  Transmission Date: 20180711
  Serious: Yes (Other)
  Sender: FDA-Public Use
  Company Number: US-SAOL THERAPEUTICS-2017SAO01109

PATIENT
  Age: 42 Year
  Sex: Female

DRUGS (5)
  1. LIORESAL [Suspect]
     Active Substance: BACLOFEN
     Dosage: 9.5 ?G, \DAY
     Route: 037
  2. DILAUDID [Suspect]
     Active Substance: HYDROMORPHONE HYDROCHLORIDE
     Dosage: 1 MG, \DAY
     Route: 037
  3. COMPOUNDED BACLOFEN [Suspect]
     Active Substance: BACLOFEN
     Dosage: 120 ?G, \DAY
     Route: 037
  4. BACLOFEN. [Suspect]
     Active Substance: BACLOFEN
     Indication: PAIN
     Route: 037
  5. BACLOFEN. [Suspect]
     Active Substance: BACLOFEN
     Indication: PAIN

REACTIONS (8)
  - Muscle spasms [Unknown]
  - Drug ineffective for unapproved indication [Recovered/Resolved]
  - Device failure [Unknown]
  - Pain [Unknown]
  - Fall [Unknown]
  - Muscle spasticity [Unknown]
  - Complication associated with device [Not Recovered/Not Resolved]
  - Device dislocation [Recovered/Resolved]

NARRATIVE: CASE EVENT DATE: 2017
